FAERS Safety Report 10170486 (Version 1)
Quarter: 2014Q2

REPORT INFORMATION
  Report Type: Spontaneous
  Country: US (occurrence: CA)
  Receive Date: 20140513
  Receipt Date: 20140513
  Transmission Date: 20141212
  Serious: Yes (Hospitalization)
  Sender: FDA-Public Use
  Company Number: CA-FRI-1000067303

PATIENT
  Sex: Female

DRUGS (2)
  1. ROFLUMILAST [Suspect]
     Dosage: 500 MCG
     Route: 048
     Dates: start: 201305
  2. WARFARIN [Concomitant]

REACTIONS (3)
  - Cardiac failure [Recovering/Resolving]
  - Pulmonary thrombosis [Recovering/Resolving]
  - Renal failure [Recovering/Resolving]
